FAERS Safety Report 9648624 (Version 2)
Quarter: 2013Q4

REPORT INFORMATION
  Report Type: Report from Study
  Country: JP (occurrence: JP)
  Receive Date: 20131028
  Receipt Date: 20131106
  Transmission Date: 20140711
  Serious: Yes (Death)
  Sender: FDA-Public Use
  Company Number: JP-PFIZER INC-2013303431

PATIENT
  Age: 85 Year
  Sex: Male

DRUGS (3)
  1. AMPICILLIN SODIUM/SULBACTAM SODIUM [Suspect]
     Indication: LUNG ABSCESS
     Dosage: 3 G, 3X/DAY
     Route: 041
     Dates: start: 20130925
  2. ROCEPHIN [Concomitant]
     Indication: PNEUMONIA
     Dosage: 2 G, 1X/DAY
     Route: 042
     Dates: start: 20130925, end: 20130925
  3. OXYGEN [Concomitant]
     Dosage: UNK
     Dates: start: 20130925

REACTIONS (1)
  - Multi-organ failure [Fatal]
